FAERS Safety Report 8183211-1 (Version None)
Quarter: 2012Q1

REPORT INFORMATION
  Report Type: 
  Country: None (occurrence: None)
  Receive Date: 20120305
  Receipt Date: 20120227
  Transmission Date: 20120608
  Serious: Yes (Hospitalization, Other)
  Sender: FDA-Public Use
  Company Number: DE-ASTELLAS-2012US002062

PATIENT
  Sex: Male
  Weight: 86 kg

DRUGS (17)
  1. SPIRIVA [Concomitant]
     Indication: CHRONIC OBSTRUCTIVE PULMONARY DISEASE
     Dosage: UNK
     Route: 065
     Dates: start: 20080701
  2. FUROSEMIDE [Concomitant]
     Indication: ASCITES
  3. BEROTEC [Concomitant]
     Indication: CHRONIC OBSTRUCTIVE PULMONARY DISEASE
     Dosage: UNK
     Route: 065
     Dates: start: 20080701
  4. SPIRONOLACTONE [Concomitant]
     Indication: ASCITES
     Dosage: UNK
     Route: 065
     Dates: start: 20110118
  5. ACTRAPID [Concomitant]
     Indication: DIABETES MELLITUS
     Dosage: UNK
     Route: 065
     Dates: start: 20100301
  6. BUTACORT [Concomitant]
     Indication: ENTERITIS
     Dosage: UNK
     Route: 065
     Dates: start: 20110423
  7. ERLOTINIB HYDROCHLORIDE [Suspect]
     Indication: HEPATIC NEOPLASM MALIGNANT
     Dosage: UNK
     Route: 048
  8. NOVALGIN [Concomitant]
     Indication: UNEVALUABLE EVENT
     Dosage: UNK
     Route: 065
     Dates: start: 20100621
  9. LIMPTAR N [Concomitant]
     Indication: MUSCLE SPASMS
     Dosage: UNK
     Route: 065
     Dates: start: 20110824
  10. OPIUM ALKALOIDS TOTAL [Concomitant]
     Indication: DIARRHOEA
     Dosage: UNK
     Route: 065
     Dates: start: 20111121
  11. SORAFENIB [Suspect]
     Dosage: 400 MG, QOD
     Route: 048
     Dates: start: 20120116
  12. TEMAZEP [Concomitant]
     Indication: INSOMNIA
     Dosage: UNK
     Route: 065
     Dates: start: 20110530
  13. SORAFENIB [Suspect]
     Indication: HEPATIC NEOPLASM MALIGNANT
     Dosage: UNK
     Route: 048
  14. MAGNESIUM [Concomitant]
     Indication: MUSCLE SPASMS
     Dosage: UNK
     Route: 065
     Dates: start: 20110517
  15. PROMETHAZINE HCL [Concomitant]
     Indication: ANXIETY DISORDER
     Dosage: UNK
     Route: 065
     Dates: start: 20110907
  16. ERLOTINIB HYDROCHLORIDE [Suspect]
     Dosage: 50 MG, UID/QD
     Route: 048
     Dates: start: 20120116
  17. FUROSEMIDE [Concomitant]
     Indication: HYPERTENSION
     Dosage: UNK
     Route: 065
     Dates: start: 20110119, end: 20120220

REACTIONS (6)
  - OFF LABEL USE [None]
  - ASCITES [None]
  - DYSPNOEA [None]
  - EPISTAXIS [None]
  - HAEMORRHAGIC ANAEMIA [None]
  - GASTRITIS EROSIVE [None]
